FAERS Safety Report 18454680 (Version 1)
Quarter: 2020Q4

REPORT INFORMATION
  Report Type: Spontaneous
  Country: IN (occurrence: IN)
  Receive Date: 20201102
  Receipt Date: 20201102
  Transmission Date: 20210114
  Serious: Yes (Death)
  Sender: FDA-Public Use
  Company Number: NVSC2020IN294039

PATIENT
  Age: 57 Year
  Sex: Female

DRUGS (1)
  1. REVOLADE [Suspect]
     Active Substance: ELTROMBOPAG
     Indication: APLASTIC ANAEMIA
     Dosage: 50 MG, QD (ONCE DAILY)
     Route: 065
     Dates: start: 20201022, end: 20201027

REACTIONS (1)
  - Internal haemorrhage [Fatal]

NARRATIVE: CASE EVENT DATE: 20201028
